FAERS Safety Report 21327567 (Version 2)
Quarter: 2022Q4

REPORT INFORMATION
  Report Type: Spontaneous
  Country: JP (occurrence: JP)
  Receive Date: 20220913
  Receipt Date: 20221006
  Transmission Date: 20230112
  Serious: Yes (Other)
  Sender: FDA-Public Use
  Company Number: JP-GEHPL-2022JSU006422AA

PATIENT
  Age: 61 Year
  Sex: Female

DRUGS (4)
  1. OMNIPAQUE [Suspect]
     Active Substance: IOHEXOL
     Indication: Computerised tomogram
     Dosage: 300 ML, SINGLE
     Route: 065
  2. OMNIPAQUE [Suspect]
     Active Substance: IOHEXOL
     Indication: Retroperitoneal haemorrhage
  3. IOMEPROL [Suspect]
     Active Substance: IOMEPROL
     Indication: Computerised tomogram
     Dosage: 200 ML
     Route: 065
  4. IOPAMIDOL [Suspect]
     Active Substance: IOPAMIDOL
     Indication: X-ray with contrast
     Route: 065

REACTIONS (4)
  - Cholecystitis [Recovered/Resolved]
  - Cholangitis [Recovered/Resolved]
  - Pancreatitis [Recovered/Resolved]
  - Scan with contrast abnormal [Recovered/Resolved]
